FAERS Safety Report 9354078 (Version 1)
Quarter: 2013Q2

REPORT INFORMATION
  Report Type: Spontaneous
  Country: US (occurrence: None)
  Receive Date: 20130613
  Receipt Date: 20130613
  Transmission Date: 20140414
  Serious: Yes (Hospitalization)
  Sender: FDA-Public Use
  Company Number: ACET20130019

PATIENT
  Age: 58 Year
  Sex: Female

DRUGS (1)
  1. Q-PAP [Suspect]
     Indication: PAIN
     Route: 048

REACTIONS (5)
  - Mental status changes [None]
  - Nausea [None]
  - Vomiting [None]
  - Diarrhoea [None]
  - Metabolic acidosis [None]
